FAERS Safety Report 21744616 (Version 2)
Quarter: 2023Q1

REPORT INFORMATION
  Report Type: Spontaneous
  Country: ES (occurrence: ES)
  Receive Date: 20221218
  Receipt Date: 20230202
  Transmission Date: 20230417
  Serious: Yes (Life-Threatening, Hospitalization, Disabling, Other)
  Sender: FDA-Public Use
  Company Number: None

PATIENT
  Age: 49 Year
  Sex: Female

DRUGS (2)
  1. LORAZEPAM [Suspect]
     Active Substance: LORAZEPAM
     Indication: Product used for unknown indication
     Dosage: UNK, TWO EMPTY BLISTER PACKS (ADMINISTERED TWO BLISTER PACKS)
     Route: 065
  2. NAPROXEN [Suspect]
     Active Substance: NAPROXEN
     Indication: Product used for unknown indication
     Dosage: UNK,TWO EMPTY BLISTER PACKS (ADMINISTERED TWO BLISTER PACKS)
     Route: 065

REACTIONS (9)
  - Compartment syndrome [Recovered/Resolved]
  - Poisoning deliberate [Recovered/Resolved]
  - Peripheral ischaemia [Recovered/Resolved]
  - Rhabdomyolysis [Recovered/Resolved]
  - Leg amputation [Unknown]
  - Metabolic acidosis [Recovered/Resolved]
  - Renal failure [Recovered/Resolved]
  - Suicide attempt [Unknown]
  - Intentional overdose [Unknown]
